FAERS Safety Report 7385965-0 (Version None)
Quarter: 2011Q1

REPORT INFORMATION
  Report Type: 
  Country: None (occurrence: None)
  Receive Date: 20110331
  Receipt Date: 20110317
  Transmission Date: 20110831
  Serious: Yes (Death, Hospitalization)
  Sender: FDA-Public Use
  Company Number: JP-JNJFOC-20110305652

PATIENT
  Sex: Male
  Weight: 45 kg

DRUGS (18)
  1. BAKTAR [Concomitant]
     Route: 048
  2. LIPITOR [Concomitant]
     Route: 048
  3. LENDORMIN [Concomitant]
     Route: 048
  4. REMICADE [Suspect]
     Indication: ERYTHRODERMIC PSORIASIS
     Route: 042
  5. REMICADE [Suspect]
     Route: 042
  6. ALLELOCK [Concomitant]
     Route: 048
  7. REMICADE [Suspect]
     Route: 042
  8. ISONIAZID [Concomitant]
     Route: 048
  9. REMICADE [Suspect]
     Route: 042
  10. REMICADE [Suspect]
     Route: 042
  11. PYDOXAL [Concomitant]
     Route: 048
  12. PARIET [Concomitant]
     Route: 048
  13. MYSLEE [Concomitant]
     Route: 048
  14. REMICADE [Suspect]
     Route: 042
  15. METHOTREXATE [Concomitant]
     Indication: ERYTHRODERMIC PSORIASIS
     Route: 048
  16. ALLEGRA [Concomitant]
     Route: 048
  17. REMICADE [Suspect]
     Route: 042
  18. NORVASC [Concomitant]
     Route: 048

REACTIONS (7)
  - SEPSIS [None]
  - INFLUENZA [None]
  - PNEUMOTHORAX [None]
  - CHOLECYSTITIS ACUTE [None]
  - SHOCK [None]
  - RESPIRATORY DISORDER [None]
  - DISSEMINATED INTRAVASCULAR COAGULATION [None]
